FAERS Safety Report 8831146 (Version 1)
Quarter: 2012Q4

REPORT INFORMATION
  Report Type: 
  Country: US (occurrence: US)
  Receive Date: 20121008
  Receipt Date: 20121008
  Transmission Date: 20130627
  Serious: No
  Sender: FDA-Public Use
  Company Number: US-VERTEX PHARMACEUTICAL INC.-2012-021453

PATIENT
  Age: 55 Year
  Sex: Female
  Weight: 72.56 kg

DRUGS (7)
  1. VX-950 [Suspect]
     Indication: HEPATITIS C
     Dosage: 750 mg, tid
     Route: 048
  2. PEGASYS [Concomitant]
     Indication: HEPATITIS C
     Dosage: 180 ?g, UNK
  3. RIBAVIRIN [Concomitant]
     Indication: HEPATITIS C
  4. FISH OIL [Concomitant]
  5. MULTIVITAMIN                       /00097801/ [Concomitant]
  6. VITAMIN D /00107901/ [Concomitant]
  7. CALCIUM [Concomitant]

REACTIONS (2)
  - White blood cell count increased [Unknown]
  - Alopecia [Unknown]
